FAERS Safety Report 18210182 (Version 6)
Quarter: 2021Q3

REPORT INFORMATION
  Report Type: Report from Study
  Country: DE (occurrence: DE)
  Receive Date: 20200829
  Receipt Date: 20210811
  Transmission Date: 20211014
  Serious: Yes (Hospitalization, Other)
  Sender: FDA-Public Use
  Company Number: NVSC2020DE219735

PATIENT
  Sex: Female
  Weight: 69 kg

DRUGS (2)
  1. KISQALI [Suspect]
     Active Substance: RIBOCICLIB
     Indication: HER2 NEGATIVE BREAST CANCER
     Dosage: 600 MG, QD (SCHEMA 21 DAYS INTAKE, 7 DAYS PAUSE)
     Route: 048
     Dates: start: 20200722, end: 20200729
  2. LETROZOLE. [Suspect]
     Active Substance: LETROZOLE
     Indication: HER2 NEGATIVE BREAST CANCER
     Dosage: 2.5 MG, QD
     Route: 048
     Dates: start: 20200722, end: 20200729

REACTIONS (10)
  - Urinary tract infection [Recovered/Resolved]
  - Anaemia [Not Recovered/Not Resolved]
  - Leukopenia [Recovered/Resolved]
  - Thrombocytopenia [Not Recovered/Not Resolved]
  - Asthenia [Not Recovered/Not Resolved]
  - Urinary tract infection [Recovered/Resolved]
  - Hyponatraemia [Recovered/Resolved]
  - Aspartate aminotransferase increased [Not Recovered/Not Resolved]
  - Gamma-glutamyltransferase increased [Not Recovered/Not Resolved]
  - Alanine aminotransferase increased [Not Recovered/Not Resolved]

NARRATIVE: CASE EVENT DATE: 20200729
